FAERS Safety Report 17122345 (Version 1)
Quarter: 2019Q4

REPORT INFORMATION
  Report Type: Spontaneous
  Country: US (occurrence: US)
  Receive Date: 20191113
  Receipt Date: 20191113
  Transmission Date: 20200122
  Serious: Yes (Death, Hospitalization)
  Sender: FDA-Public Use
  Company Number: None

PATIENT
  Age: 72 Year
  Weight: 32.93 kg

DRUGS (9)
  1. PREDNISONE. [Concomitant]
     Active Substance: PREDNISONE
  2. FOLIC ACID. [Concomitant]
     Active Substance: FOLIC ACID
  3. IPILIMUMAB 68MG [Suspect]
     Active Substance: IPILIMUMAB
     Indication: SOFT TISSUE SARCOMA
     Route: 042
     Dates: start: 20181217
  4. VITAMIN K [Concomitant]
     Active Substance: PHYTONADIONE
  5. ELECTROLYTE 148 SOLUTION [Concomitant]
  6. NIVOLUMAB 240MG [Suspect]
     Active Substance: NIVOLUMAB
     Indication: SOFT TISSUE SARCOMA
     Route: 042
     Dates: start: 20181217
  7. LASIX [Suspect]
     Active Substance: FUROSEMIDE
  8. SODIUM PHOSPAHE [Concomitant]
  9. ROBINIL [Concomitant]

REACTIONS (25)
  - Asterixis [None]
  - Generalised oedema [None]
  - Liver disorder [None]
  - International normalised ratio increased [None]
  - General physical health deterioration [None]
  - Oedema [None]
  - Blood albumin decreased [None]
  - Asthenia [None]
  - Abdominal distension [None]
  - Aspiration [None]
  - Feeling jittery [None]
  - Prothrombin time prolonged [None]
  - Vocal cord paralysis [None]
  - Hypophagia [None]
  - Encephalopathy [None]
  - Heart rate increased [None]
  - Ascites [None]
  - Dysphagia [None]
  - Oedema peripheral [None]
  - Anxiety [None]
  - Sedation [None]
  - Fatigue [None]
  - Abdominal tenderness [None]
  - Oral candidiasis [None]
  - Tremor [None]
